FAERS Safety Report 11097516 (Version 1)
Quarter: 2015Q2

REPORT INFORMATION
  Report Type: Spontaneous
  Country: US (occurrence: None)
  Receive Date: 20150507
  Receipt Date: 20150507
  Transmission Date: 20150821
  Serious: Yes (Other)
  Sender: FDA-Public Use
  Company Number: None

PATIENT
  Age: 45 Year
  Sex: Female
  Weight: 99.34 kg

DRUGS (1)
  1. ZIPRAZIDONE [Suspect]
     Active Substance: ZIPRASIDONE
     Indication: BIPOLAR I DISORDER
     Route: 048

REACTIONS (1)
  - Dyspnoea [None]
